FAERS Safety Report 8913411 (Version 2)
Quarter: 2013Q4

REPORT INFORMATION
  Report Type: Spontaneous
  Country: US (occurrence: None)
  Receive Date: 20121114
  Receipt Date: 20131003
  Transmission Date: 20140711
  Serious: Yes (Other)
  Sender: FDA-Public Use
  Company Number: 2012-003991

PATIENT
  Age: 62 Year
  Sex: Male
  Weight: 80.7 kg

DRUGS (7)
  1. ASACOL [Suspect]
     Indication: COLITIS ULCERATIVE
     Dosage: TWO 400 MG TABLETS THREE TIMES DAILY, ORAL
     Route: 048
     Dates: start: 2002
  2. JANUMET (METFORMIN HYDROCHLORIDE, SITAGLIPTIN PHOSPHATE MONOHYDRATE) [Concomitant]
  3. GLIPIZIDE (GLIPIZIDE) [Concomitant]
  4. PRAVACHOL (PRAVASTATIN SODIUM) [Concomitant]
  5. LOSARTAN/HYDROCHLOORTHIAZIDE (HYDROCHLOROTHIAZIDE, LOSARTAN POTASSIUM) [Concomitant]
  6. AMLODIPINE (AMLODIPINE) [Concomitant]
  7. ASPIRIN (ACETYLSALICYLIC ACID) [Concomitant]

REACTIONS (4)
  - Hepatic lesion [None]
  - Hepatic steatosis [None]
  - Hepatic enzyme increased [None]
  - Blood creatinine increased [None]
